FAERS Safety Report 5607622-0 (Version None)
Quarter: 2008Q1

REPORT INFORMATION
  Report Type: 
  Country: None (occurrence: None)
  Receive Date: 20080130
  Receipt Date: 20080117
  Transmission Date: 20080703
  Serious: Yes (Other)
  Sender: FDA-Public Use
  Company Number: PHFR2008GB00650

PATIENT
  Sex: Male

DRUGS (1)
  1. CLOZARIL [Suspect]
     Dosage: 700 MG/DAY
     Route: 048

REACTIONS (2)
  - OBSESSIVE-COMPULSIVE PERSONALITY DISORDER [None]
  - WEIGHT INCREASED [None]
